FAERS Safety Report 19435104 (Version 4)
Quarter: 2021Q3

REPORT INFORMATION
  Report Type: Spontaneous
  Country: GR (occurrence: GR)
  Receive Date: 20210617
  Receipt Date: 20210908
  Transmission Date: 20211014
  Serious: Yes (Other)
  Sender: FDA-Public Use
  Company Number: GR-ORGANON-O2106GRC001363

PATIENT
  Age: 65 Year
  Sex: Female

DRUGS (9)
  1. AERIUS (DESLORATADINE) [Suspect]
     Active Substance: DESLORATADINE
     Indication: RHINITIS
  2. LOSEC CONTROL [Suspect]
     Active Substance: OMEPRAZOLE MAGNESIUM
     Indication: GASTROOESOPHAGEAL REFLUX DISEASE
     Dosage: UNK
  3. AERIUS (DESLORATADINE) [Suspect]
     Active Substance: DESLORATADINE
     Indication: MUSCULOSKELETAL STIFFNESS
     Dosage: EVERY DAY ONE TAB.
     Route: 048
  4. COMIRNATY [Suspect]
     Active Substance: TOZINAMERAN
     Indication: COVID-19 IMMUNISATION
     Dosage: 1.0DF ONCE/SINGLE ADMINISTRATION
     Route: 030
     Dates: start: 20210416, end: 20210416
  5. METHOTREXATE. [Suspect]
     Active Substance: METHOTREXATE
     Indication: RHEUMATOID ARTHRITIS
     Dosage: UNK
     Dates: start: 202009
  6. OMEPRAZOLE. [Suspect]
     Active Substance: OMEPRAZOLE
     Indication: GASTROOESOPHAGEAL REFLUX DISEASE
     Dosage: UNK
     Route: 048
  7. MEDROL [Suspect]
     Active Substance: METHYLPREDNISOLONE
     Indication: RHEUMATOID ARTHRITIS
     Dosage: TWO PER DAY AND TWO MORE IN THE NIGHT.
     Dates: start: 202009
  8. MEDROL [Suspect]
     Active Substance: METHYLPREDNISOLONE
     Dosage: TWO PER DAY AND  TWO MORE IN THE NIGHT.
     Dates: start: 202009
  9. COVID?19 VACCINE NOS. [Suspect]
     Active Substance: COVID-19 VACCINE NOS
     Dosage: UNK
     Dates: start: 20210416

REACTIONS (9)
  - Swelling [Unknown]
  - Product use issue [Unknown]
  - Mobility decreased [Unknown]
  - Arthralgia [Recovered/Resolved]
  - Toothache [Unknown]
  - Paralysis [Recovering/Resolving]
  - Pain [Recovering/Resolving]
  - Pyrexia [Unknown]
  - Product use in unapproved indication [Unknown]

NARRATIVE: CASE EVENT DATE: 2021
